FAERS Safety Report 8139308-5 (Version None)
Quarter: 2012Q1

REPORT INFORMATION
  Report Type: 
  Country: None (occurrence: None)
  Receive Date: 20120215
  Receipt Date: 20111228
  Transmission Date: 20120608
  Serious: Yes (Hospitalization)
  Sender: FDA-Public Use
  Company Number: PHHO2011US019420

PATIENT
  Sex: Female
  Weight: 56.599 kg

DRUGS (3)
  1. CLONIDINE HCL [Suspect]
     Indication: HYPERTENSION
     Dosage: UNK
  2. NORVASC [Suspect]
  3. BEZ235 [Suspect]
     Indication: NEOPLASM MALIGNANT
     Dosage: 1200 MG, QD
     Dates: start: 20110525, end: 20111115

REACTIONS (1)
  - SEPSIS [None]
